FAERS Safety Report 4510811-X (Version None)
Quarter: 2004Q4

REPORT INFORMATION
  Report Type: 
  Country: None (occurrence: None)
  Receive Date: 20041122
  Receipt Date: 20041109
  Transmission Date: 20050328
  Serious: Yes (Death, Hospitalization)
  Sender: FDA-Public Use
  Company Number: CERZ-10707

PATIENT
  Age: 10 Year
  Sex: Male
  Weight: 16 kg

DRUGS (1)
  1. CEREZYME [Suspect]
     Indication: GAUCHER'S DISEASE
     Dosage: 1600 UNITS Q2WKS IV
     Route: 042
     Dates: start: 19980311, end: 20040930

REACTIONS (3)
  - CARDIAC ARREST [None]
  - CONDITION AGGRAVATED [None]
  - RESPIRATORY FAILURE [None]
